FAERS Safety Report 10286344 (Version 1)
Quarter: 2014Q3

REPORT INFORMATION
  Report Type: Spontaneous
  Country: US (occurrence: US)
  Receive Date: 20140709
  Receipt Date: 20140709
  Transmission Date: 20150326
  Serious: Yes (Hospitalization)
  Sender: FDA-Public Use
  Company Number: US-MALLINCKRODT-T201402700

PATIENT

DRUGS (1)
  1. PAMELOR [Suspect]
     Active Substance: NORTRIPTYLINE HYDROCHLORIDE
     Indication: PRODUCT USED FOR UNKNOWN INDICATION
     Dosage: UNK
     Route: 065

REACTIONS (5)
  - Acute respiratory failure [Unknown]
  - Unresponsive to stimuli [Unknown]
  - Status epilepticus [Unknown]
  - Encephalopathy [Unknown]
  - Arrhythmia [Unknown]

NARRATIVE: CASE EVENT DATE: 20120825
